FAERS Safety Report 5303399-7 (Version None)
Quarter: 2007Q2

REPORT INFORMATION
  Report Type: 
  Country: None (occurrence: None)
  Receive Date: 20070420
  Receipt Date: 20070410
  Transmission Date: 20071010
  Serious: Yes (Other)
  Sender: FDA-Public Use
  Company Number: JP-ROCHE-490331

PATIENT
  Age: 40 Year
  Sex: Female
  Weight: 55 kg

DRUGS (8)
  1. TAMIFLU [Suspect]
     Route: 048
     Dates: start: 20070315, end: 20070315
  2. TAMIFLU [Suspect]
     Route: 048
     Dates: start: 20070316, end: 20070316
  3. TAMIFLU [Suspect]
     Route: 048
     Dates: start: 20070317
  4. LIMAS [Concomitant]
     Route: 048
     Dates: start: 20061203
  5. DEPAKENE [Concomitant]
     Route: 048
     Dates: start: 20061203
  6. DEPAS [Concomitant]
     Route: 048
     Dates: start: 20061203
  7. MEILAX [Concomitant]
     Route: 048
     Dates: start: 20061203
  8. LUVOX [Concomitant]
     Route: 048
     Dates: start: 20061203

REACTIONS (1)
  - ALICE IN WONDERLAND SYNDROME [None]
